FAERS Safety Report 5050512-5 (Version None)
Quarter: 2006Q3

REPORT INFORMATION
  Report Type: 
  Country: None (occurrence: None)
  Receive Date: 20060707
  Receipt Date: 20060616
  Transmission Date: 20061208
  Serious: Yes (Hospitalization)
  Sender: FDA-Public Use
  Company Number: S06-SWE-02611-01

PATIENT
  Age: 85 Year
  Sex: Female

DRUGS (11)
  1. MEMANTINE HCL [Suspect]
     Indication: DEMENTIA ALZHEIMER'S TYPE
     Dosage: 10 MG BID PO
     Route: 048
     Dates: start: 20051220, end: 20060414
  2. ALVEDON (PARACETAMOL) [Concomitant]
  3. PEVARYL (ECONAZOLE NITRATE) [Concomitant]
  4. ENALAPRIL ACTAVIS (ENALAPRIL) [Concomitant]
  5. FOLACIN [Concomitant]
  6. WARFARIN SODIUM [Concomitant]
  7. BEHEPAN (CYANOCOBALAMIN) [Concomitant]
  8. DIGOXIN [Concomitant]
  9. KALUM RETARD [Concomitant]
  10. FUROSEMIDE [Concomitant]
  11. NITROMEX (GLYCERYL TRINITRATE) [Concomitant]

REACTIONS (3)
  - CARDIAC FAILURE ACUTE [None]
  - DEPRESSED LEVEL OF CONSCIOUSNESS [None]
  - RESPIRATORY DEPRESSION [None]
